FAERS Safety Report 7938061-5 (Version None)
Quarter: 2011Q4

REPORT INFORMATION
  Report Type: 
  Country: None (occurrence: None)
  Receive Date: 20111123
  Receipt Date: 20111116
  Transmission Date: 20120403
  Serious: Yes (Other)
  Sender: FDA-Public Use
  Company Number: AU-UCBSA-8025831

PATIENT
  Age: 37 Year
  Sex: Male
  Weight: 77.9 kg

DRUGS (6)
  1. CERTOLIZUMAB PEGOL [Suspect]
     Dosage: DOSE FREQ.: ONCE MONTHLY
     Route: 058
     Dates: start: 20060810, end: 20070903
  2. CERTOLIZUMAB PEGOL [Suspect]
     Indication: CROHN'S DISEASE
     Dosage: - NR OF DOSES :3
     Route: 058
     Dates: start: 20040831, end: 20040928
  3. CERTOLIZUMAB PEGOL [Suspect]
     Dosage: DOSE FREQ.: ONCE MONTHLY - NR OF DOSES :19
     Route: 058
     Dates: start: 20050110, end: 20060531
  4. AZATHIOPRINE [Concomitant]
     Indication: CROHN'S DISEASE
     Dosage: DAILY
     Route: 048
     Dates: start: 20030401, end: 20051201
  5. CERTOLIZUMAB PEGOL [Suspect]
     Dosage: DOSE FREQ.: ONCE MONTHLY - NR OF DOSES :1
     Route: 058
     Dates: start: 20041026, end: 20041026
  6. CERTOLIZUMAB PEGOL [Suspect]
     Dosage: - NR OF DOSES :3
     Route: 058
     Dates: start: 20041118, end: 20041215

REACTIONS (1)
  - SPERM ANALYSIS ABNORMAL [None]
